FAERS Safety Report 5076120-8 (Version None)
Quarter: 2006Q3

REPORT INFORMATION
  Report Type: 
  Country: None (occurrence: None)
  Receive Date: 20060804
  Receipt Date: 20060725
  Transmission Date: 20061208
  Serious: Yes (Hospitalization)
  Sender: FDA-Public Use
  Company Number: MEDI-0004721

PATIENT
  Age: 11 Month
  Sex: Male

DRUGS (6)
  1. SYNAGIS [Suspect]
     Indication: ANTIVIRAL PROPHYLAXIS
     Dosage: 90 MG, 1 IN 1 M, INTRAMUSCULAR ; 60 MG, 1 IN 1 M, INTRAMUSCULAR ; 66 MG, 1 IN 1 M, INTRAMUSCULAR ; 7
     Route: 030
     Dates: start: 20051008, end: 20060315
  2. SYNAGIS [Suspect]
     Indication: ANTIVIRAL PROPHYLAXIS
     Dosage: 90 MG, 1 IN 1 M, INTRAMUSCULAR ; 60 MG, 1 IN 1 M, INTRAMUSCULAR ; 66 MG, 1 IN 1 M, INTRAMUSCULAR ; 7
     Route: 030
     Dates: start: 20051008
  3. SYNAGIS [Suspect]
     Indication: ANTIVIRAL PROPHYLAXIS
     Dosage: 90 MG, 1 IN 1 M, INTRAMUSCULAR ; 60 MG, 1 IN 1 M, INTRAMUSCULAR ; 66 MG, 1 IN 1 M, INTRAMUSCULAR ; 7
     Route: 030
     Dates: start: 20051104
  4. SYNAGIS [Suspect]
     Indication: ANTIVIRAL PROPHYLAXIS
     Dosage: 90 MG, 1 IN 1 M, INTRAMUSCULAR ; 60 MG, 1 IN 1 M, INTRAMUSCULAR ; 66 MG, 1 IN 1 M, INTRAMUSCULAR ; 7
     Route: 030
     Dates: start: 20051201
  5. SYNAGIS [Suspect]
     Indication: ANTIVIRAL PROPHYLAXIS
     Dosage: 90 MG, 1 IN 1 M, INTRAMUSCULAR ; 60 MG, 1 IN 1 M, INTRAMUSCULAR ; 66 MG, 1 IN 1 M, INTRAMUSCULAR ; 7
     Route: 030
     Dates: start: 20060105
  6. SYNAGIS [Suspect]
     Indication: ANTIVIRAL PROPHYLAXIS
     Dosage: 90 MG, 1 IN 1 M, INTRAMUSCULAR ; 60 MG, 1 IN 1 M, INTRAMUSCULAR ; 66 MG, 1 IN 1 M, INTRAMUSCULAR ; 7
     Route: 030
     Dates: start: 20060206

REACTIONS (2)
  - GASTROENTERITIS [None]
  - LUNG DISORDER [None]
